FAERS Safety Report 7016013-X (Version None)
Quarter: 2010Q3

REPORT INFORMATION
  Report Type: 
  Country: None (occurrence: None)
  Receive Date: 20100927
  Receipt Date: 20100916
  Transmission Date: 20110219
  Serious: Yes (Hospitalization, Other)
  Sender: FDA-Public Use
  Company Number: GB-TEVA-249545ISR

PATIENT
  Age: 29 Year
  Sex: Male
  Weight: 90 kg

DRUGS (3)
  1. VALPROIC ACID [Suspect]
     Indication: DROP ATTACKS
     Route: 048
     Dates: start: 20080701
  2. VALPROIC ACID [Suspect]
     Indication: MYOCLONIC EPILEPSY
  3. CLOZAPINE [Suspect]
     Route: 048
     Dates: start: 20070606, end: 20100526

REACTIONS (10)
  - ABDOMINAL NEOPLASM [None]
  - CARDIAC DISORDER [None]
  - CARDIAC FAILURE [None]
  - CONDUCTION DISORDER [None]
  - DROP ATTACKS [None]
  - HEART VALVE REPLACEMENT [None]
  - MYOCLONUS [None]
  - OEDEMA PERIPHERAL [None]
  - PLATELET COUNT DECREASED [None]
  - THROMBOCYTOPENIA [None]
